FAERS Safety Report 8361329-8 (Version None)
Quarter: 2012Q2

REPORT INFORMATION
  Report Type: 
  Country: None (occurrence: None)
  Receive Date: 20120515
  Receipt Date: 20110804
  Transmission Date: 20120825
  Serious: No
  Sender: FDA-Public Use
  Company Number: US-ALEXION-A201101132

PATIENT
  Sex: Male

DRUGS (12)
  1. PREDNISONE TAB [Concomitant]
     Dosage: 10 MG QD
  2. SOLIRIS [Suspect]
     Dosage: 900 MG Q 12 DAYS
     Route: 042
  3. FOLIC ACID [Concomitant]
     Dosage: 1 MG QD
  4. SIMVASTATIN [Concomitant]
     Dosage: 20 MG QHS
  5. SOLIRIS [Suspect]
     Indication: PAROXYSMAL NOCTURNAL HAEMOGLOBINURIA
     Dosage: UNK, Q2W
     Route: 042
     Dates: start: 20110726
  6. RESTORIL [Concomitant]
     Dosage: 30 MG PRN
  7. MULTI-VITAMIN [Concomitant]
     Dosage: UNK PRN
  8. PREDNISONE TAB [Concomitant]
     Dosage: 20 MG QD
  9. SOLIRIS [Suspect]
     Dosage: 1200 MG Q2W
     Route: 042
  10. METOPROLOL TARTRATE [Concomitant]
     Dosage: 25 MG 1/2 TAB BID
  11. ASPIRIN [Concomitant]
     Dosage: 81 MG 3 TABS QD
     Route: 048
  12. PROCRIT [Concomitant]
     Dosage: 80,000 UNITS WEEKLY
     Route: 058

REACTIONS (2)
  - SERUM FERRITIN INCREASED [None]
  - HAEMOGLOBINURIA [None]
